FAERS Safety Report 23389344 (Version 1)
Quarter: 2024Q1

REPORT INFORMATION
  Report Type: Spontaneous
  Country: US (occurrence: US)
  Receive Date: 20240110
  Receipt Date: 20240110
  Transmission Date: 20240410
  Serious: No
  Sender: FDA-Public Use
  Company Number: US-REGENERON PHARMACEUTICALS, INC.-2023-037439

PATIENT
  Age: 5 Decade

DRUGS (1)
  1. EYLEA [Suspect]
     Active Substance: AFLIBERCEPT
     Indication: Histoplasmosis
     Dosage: UNKNOWN; FORMULATION: UNKNOWN
     Route: 065

REACTIONS (1)
  - Off label use [Unknown]
